FAERS Safety Report 4660577-8 (Version None)
Quarter: 2005Q2

REPORT INFORMATION
  Report Type: 
  Country: None (occurrence: None)
  Receive Date: 20050512
  Receipt Date: 20050411
  Transmission Date: 20051028
  Serious: Yes (Life-Threatening, Hospitalization)
  Sender: FDA-Public Use
  Company Number: FR-BRISTOL-MYERS SQUIBB COMPANY-12930590

PATIENT
  Age: 71 Year
  Sex: Male

DRUGS (6)
  1. ELISOR TABS [Suspect]
     Indication: CARDIAC FAILURE
     Route: 048
  2. IXPRIM [Interacting]
     Indication: PAIN IN EXTREMITY
  3. PREVISCAN [Concomitant]
     Indication: AORTIC VALVE DISEASE
  4. FONZYLANE [Concomitant]
     Indication: ARTERITIS
  5. LASILIX [Concomitant]
     Indication: CARDIAC FAILURE
  6. COVERSYL [Concomitant]

REACTIONS (4)
  - ANAEMIA [None]
  - ARTERIOPATHIC DISEASE [None]
  - DRUG INTERACTION [None]
  - HAEMATOMA [None]
